FAERS Safety Report 4897209-X (Version None)
Quarter: 2005Q4

REPORT INFORMATION
  Report Type: 
  Country: None (occurrence: None)
  Receive Date: 20051223
  Receipt Date: 20051006
  Transmission Date: 20060501
  Serious: No
  Sender: FDA-Public Use
  Company Number: 05P-163-0313021-00

PATIENT
  Age: 57 Year
  Sex: Male
  Weight: 100 kg

DRUGS (5)
  1. HUMIRA [Suspect]
     Indication: RHEUMATOID ARTHRITIS
     Dosage: 40 MG, 1 IN 2 WK, SUBCUTANEOUS
     Route: 058
     Dates: start: 20050801
  2. ROSIGLITAZONE MALEATE [Concomitant]
  3. METFORMIN HYDROCHLORIDE [Concomitant]
  4. AZATHIOPRINE [Concomitant]
  5. VALSARTAN [Concomitant]

REACTIONS (1)
  - BRONCHITIS [None]
